FAERS Safety Report 4376982-3 (Version None)
Quarter: 2004Q2

REPORT INFORMATION
  Report Type: 
  Country: None (occurrence: None)
  Receive Date: 20040608
  Receipt Date: 20040525
  Transmission Date: 20050107
  Serious: Yes (Other)
  Sender: FDA-Public Use
  Company Number: CA-JNJFOC-20040506108

PATIENT
  Age: 46 Year
  Sex: Male

DRUGS (1)
  1. REMICADE (INFLIXIMAB, RECOMVINANT) LYOPHILIZED POWDER [Suspect]
     Indication: CROHN'S DISEASE
     Dosage: 5 MG/KG, 1 IN 4 WEEKS, INTRAVENOUS
     Route: 042
     Dates: start: 19991201

REACTIONS (1)
  - CONGESTIVE CARDIOMYOPATHY [None]
